FAERS Safety Report 8777833 (Version 2)
Quarter: 2012Q4

REPORT INFORMATION
  Report Type: 
  Country: NL (occurrence: NL)
  Receive Date: 20120912
  Receipt Date: 20121004
  Transmission Date: 20130627
  Serious: Yes (Death)
  Sender: FDA-Public Use
  Company Number: PHHY2012NL078919

PATIENT
  Age: 59 Year
  Sex: Male
  Weight: 80 kg

DRUGS (2)
  1. ZOMETA [Suspect]
     Indication: OSTEOPOROSIS
     Dosage: 4 mg/100ml, per 28 days
     Dates: start: 20120720
  2. ZOMETA [Suspect]
     Dosage: 4 mg/100ml, per 28 days
     Dates: start: 20120817

REACTIONS (1)
  - Pulmonary embolism [Fatal]
